FAERS Safety Report 14675560 (Version 4)
Quarter: 2023Q4

REPORT INFORMATION
  Report Type: Spontaneous
  Country: JP (occurrence: JP)
  Receive Date: 20180323
  Receipt Date: 20231201
  Transmission Date: 20240109
  Serious: Yes (Other)
  Sender: FDA-Public Use
  Company Number: JP-SANOFI-2017SA122347

PATIENT
  Age: 5 Month
  Sex: Male
  Weight: 7 kg

DRUGS (32)
  1. SABRIL [Suspect]
     Active Substance: VIGABATRIN
     Indication: Infantile spasms
     Dosage: 180 MG, BID
     Route: 048
     Dates: start: 20161021, end: 20161025
  2. SABRIL [Suspect]
     Active Substance: VIGABATRIN
     Dosage: 275 MG, BID
     Route: 048
     Dates: start: 20161025, end: 20161028
  3. SABRIL [Suspect]
     Active Substance: VIGABATRIN
     Dosage: 375 MG, BID
     Route: 048
     Dates: start: 20161028, end: 20161101
  4. SABRIL [Suspect]
     Active Substance: VIGABATRIN
     Dosage: 475 MG, BID
     Route: 048
     Dates: start: 20161101, end: 20161104
  5. SABRIL [Suspect]
     Active Substance: VIGABATRIN
     Dosage: 575 MG, BID
     Route: 048
     Dates: start: 20161104, end: 20161108
  6. SABRIL [Suspect]
     Active Substance: VIGABATRIN
     Dosage: 400 MG, BID
     Route: 048
     Dates: start: 20161108, end: 20161111
  7. SABRIL [Suspect]
     Active Substance: VIGABATRIN
     Dosage: 200 MG, BID
     Route: 048
     Dates: start: 20161111, end: 20161115
  8. VALPROATE SODIUM [Concomitant]
     Active Substance: VALPROATE SODIUM
     Indication: Infantile spasms
     Dosage: UNK, QD
     Route: 048
     Dates: start: 20161207, end: 20161208
  9. VALPROATE SODIUM [Concomitant]
     Active Substance: VALPROATE SODIUM
     Dosage: UNK
     Route: 048
     Dates: start: 20161208
  10. ZONISAMIDE [Concomitant]
     Active Substance: ZONISAMIDE
     Indication: Infantile spasms
     Dosage: UNK, QD
     Route: 048
     Dates: start: 20160918, end: 20160920
  11. ZONISAMIDE [Concomitant]
     Active Substance: ZONISAMIDE
     Dosage: UNK
     Route: 048
     Dates: start: 20160921, end: 20160924
  12. ZONISAMIDE [Concomitant]
     Active Substance: ZONISAMIDE
     Dosage: UNK
     Route: 048
     Dates: start: 20160925, end: 20160929
  13. ZONISAMIDE [Concomitant]
     Active Substance: ZONISAMIDE
     Dosage: UNK
     Route: 048
     Dates: start: 20160930, end: 20161003
  14. ZONISAMIDE [Concomitant]
     Active Substance: ZONISAMIDE
     Dosage: UNK
     Route: 048
     Dates: start: 20161004, end: 20161006
  15. ZONISAMIDE [Concomitant]
     Active Substance: ZONISAMIDE
     Dosage: UNK
     Route: 048
     Dates: start: 20161007, end: 20161020
  16. ZONISAMIDE [Concomitant]
     Active Substance: ZONISAMIDE
     Dosage: UNK, QD
     Route: 048
     Dates: start: 20161021, end: 20161121
  17. ZONISAMIDE [Concomitant]
     Active Substance: ZONISAMIDE
     Dosage: UNK
     Route: 048
     Dates: start: 20161122, end: 20161125
  18. VITAMIN B6 [Concomitant]
     Active Substance: PYRIDOXINE HYDROCHLORIDE
     Indication: Infantile spasms
     Dosage: UNK, QD
     Route: 048
     Dates: start: 20161007, end: 20161010
  19. VITAMIN B6 [Concomitant]
     Active Substance: PYRIDOXINE HYDROCHLORIDE
     Dosage: UNK
     Route: 048
     Dates: start: 20161011, end: 20161013
  20. VITAMIN B6 [Concomitant]
     Active Substance: PYRIDOXINE HYDROCHLORIDE
     Dosage: UNK
     Route: 048
     Dates: start: 20161014, end: 20161017
  21. VITAMIN B6 [Concomitant]
     Active Substance: PYRIDOXINE HYDROCHLORIDE
     Dosage: UNK
     Route: 048
     Dates: start: 20161018, end: 20161020
  22. VITAMIN B6 [Concomitant]
     Active Substance: PYRIDOXINE HYDROCHLORIDE
     Dosage: UNK
     Route: 048
     Dates: start: 20161021, end: 20161025
  23. PHENOBARBITAL [Concomitant]
     Active Substance: PHENOBARBITAL
     Indication: Infantile spasms
     Dosage: UNK, QD
     Route: 048
     Dates: start: 201607, end: 20160915
  24. PHENOBARBITAL [Concomitant]
     Active Substance: PHENOBARBITAL
     Indication: Prophylaxis
     Dosage: UNK
     Route: 048
     Dates: start: 20160916, end: 20160917
  25. PHENOBARBITAL [Concomitant]
     Active Substance: PHENOBARBITAL
     Dosage: UNK
     Route: 048
     Dates: start: 20160918, end: 20170911
  26. PHENOBARBITAL [Concomitant]
     Active Substance: PHENOBARBITAL
     Dosage: UNK
     Route: 048
     Dates: start: 20170912, end: 20171018
  27. URALYT U [POTASSIUM CITRATE;SODIUM CITRATE DIHYDRATE] [Concomitant]
     Indication: Prophylaxis
     Route: 048
     Dates: start: 20160930, end: 20161209
  28. ACYCLOVIR [Concomitant]
     Active Substance: ACYCLOVIR
     Indication: Prophylaxis
     Dosage: UNK, QD
     Route: 048
     Dates: start: 20161109, end: 20161212
  29. ACYCLOVIR [Concomitant]
     Active Substance: ACYCLOVIR
     Dosage: UNK
     Route: 048
     Dates: start: 20161213, end: 20170109
  30. ACYCLOVIR [Concomitant]
     Active Substance: ACYCLOVIR
     Dosage: UNK, QD
     Route: 048
     Dates: start: 20170110, end: 20170207
  31. SULFAMETHOXAZOLE\TRIMETHOPRIM [Concomitant]
     Active Substance: SULFAMETHOXAZOLE\TRIMETHOPRIM
     Indication: Product used for unknown indication
     Route: 048
     Dates: start: 20161123, end: 20170206
  32. SULFAMETHOXAZOLE\TRIMETHOPRIM [Concomitant]
     Active Substance: SULFAMETHOXAZOLE\TRIMETHOPRIM
     Indication: Prophylaxis
     Dosage: 0.8 G, TIW
     Route: 048
     Dates: start: 20161123, end: 20170206

REACTIONS (4)
  - Hypokalaemia [Recovered/Resolved]
  - Secondary hypertension [Recovered/Resolved]
  - Diarrhoea [Recovered/Resolved]
  - Drug ineffective [Unknown]

NARRATIVE: CASE EVENT DATE: 20161122
